FAERS Safety Report 9403258 (Version 2)
Quarter: 2013Q4

REPORT INFORMATION
  Report Type: Spontaneous
  Country: GB (occurrence: GB)
  Receive Date: 20130716
  Receipt Date: 20131213
  Transmission Date: 20140711
  Serious: Yes (Hospitalization)
  Sender: FDA-Public Use
  Company Number: GB-MYLANLABS-2013S1014783

PATIENT
  Age: 64 Year
  Sex: Female
  Weight: 62.6 kg

DRUGS (1)
  1. ALENDRONIC ACID [Suspect]
     Indication: OSTEOPOROSIS
     Route: 048
     Dates: start: 20130112, end: 20130330

REACTIONS (5)
  - Eyelid oedema [Recovered/Resolved with Sequelae]
  - Eye pain [Recovered/Resolved with Sequelae]
  - Eye swelling [Recovered/Resolved with Sequelae]
  - Cataract [Unknown]
  - Visual acuity reduced [Unknown]
